FAERS Safety Report 7132442-8 (Version None)
Quarter: 2010Q4

REPORT INFORMATION
  Report Type: 
  Country: None (occurrence: None)
  Receive Date: 20101202
  Receipt Date: 20101119
  Transmission Date: 20110411
  Serious: Yes (Hospitalization, Other)
  Sender: FDA-Public Use
  Company Number: US-ROCHE-723030

PATIENT
  Sex: Male

DRUGS (6)
  1. ACCUTANE [Suspect]
     Indication: ACNE
     Route: 048
     Dates: start: 19980101, end: 19990101
  2. ACCUTANE [Suspect]
     Dosage: STOP DATE REPORTED AS 31 SEP 98, LATER 80 MG AT NIGHT
     Route: 048
     Dates: start: 19980601, end: 19980901
  3. MINOCYCLINE [Concomitant]
     Route: 048
  4. NUPRIN [Concomitant]
  5. DIFFERIN [Concomitant]
  6. MARIJUANA [Concomitant]
     Dates: start: 19990101

REACTIONS (10)
  - BLOOD CHOLESTEROL DECREASED [None]
  - CROHN'S DISEASE [None]
  - FATIGUE [None]
  - GASTROINTESTINAL INJURY [None]
  - HEADACHE [None]
  - INFLAMMATORY BOWEL DISEASE [None]
  - INTESTINAL OBSTRUCTION [None]
  - MUSCULOSKELETAL PAIN [None]
  - NASAL DRYNESS [None]
  - NAUSEA [None]
